FAERS Safety Report 24443878 (Version 1)
Quarter: 2024Q4

REPORT INFORMATION
  Report Type: Report from Study
  Country: ES (occurrence: ES)
  Receive Date: 20241016
  Receipt Date: 20241016
  Transmission Date: 20250115
  Serious: Yes (Other)
  Sender: TEVA
  Company Number: ES-TEVA-VS-3252901

PATIENT
  Age: 69 Year
  Sex: Female

DRUGS (4)
  1. TERIPARATIDE [Suspect]
     Active Substance: TERIPARATIDE
     Indication: Osteoporosis
     Route: 065
     Dates: start: 20241004
  2. CALCIUM CARBONATE\CHOLECALCIFEROL [Concomitant]
     Active Substance: CALCIUM CARBONATE\CHOLECALCIFEROL
     Indication: Osteoporosis
  3. AREDSAN [Concomitant]
     Indication: Retinopathy
  4. PREDNISONE [Concomitant]
     Active Substance: PREDNISONE
     Indication: Rheumatic disorder
     Dosage: STARTED WITH 30 MG OF DACORTIN, IS TAPERING, CURRENTLY AT 10 MG
     Dates: start: 20240911, end: 20241013

REACTIONS (2)
  - Faecaloma [Not Recovered/Not Resolved]
  - Dizziness [Not Recovered/Not Resolved]

NARRATIVE: CASE EVENT DATE: 20241004
